FAERS Safety Report 16696141 (Version 1)
Quarter: 2019Q3

REPORT INFORMATION
  Report Type: Report from Study
  Country: JO (occurrence: JO)
  Receive Date: 20190813
  Receipt Date: 20190813
  Transmission Date: 20191004
  Serious: Yes (Other)
  Sender: FDA-Public Use
  Company Number: JO-ROCHE-2369471

PATIENT

DRUGS (2)
  1. BEVACIZUMAB. [Suspect]
     Active Substance: BEVACIZUMAB
     Indication: GLAUCOMA
     Dosage: 3.75 MG /0.15 ML
     Route: 057
  2. BEVACIZUMAB. [Suspect]
     Active Substance: BEVACIZUMAB
     Indication: IRIS NEOVASCULARISATION
     Dosage: 1.25 MG/0.05 ML
     Route: 050

REACTIONS (1)
  - Endophthalmitis [Unknown]
